FAERS Safety Report 18539081 (Version 1)
Quarter: 2020Q4

REPORT INFORMATION
  Report Type: Spontaneous
  Country: US (occurrence: US)
  Receive Date: 20201123
  Receipt Date: 20201123
  Transmission Date: 20210114
  Serious: Yes (Hospitalization)
  Sender: FDA-Public Use
  Company Number: None

PATIENT
  Sex: Female

DRUGS (22)
  1. ALLERGY CAP [Concomitant]
  2. DOVONEX [Concomitant]
     Active Substance: CALCIPOTRIENE
  3. ALLOPURINOL. [Concomitant]
     Active Substance: ALLOPURINOL
  4. BETAMETH [Concomitant]
  5. BUPROPION. [Concomitant]
     Active Substance: BUPROPION
  6. HYDROCO/APAP [Concomitant]
     Active Substance: ACETAMINOPHEN\HYDROCODONE
  7. CROMOLYN [Concomitant]
     Active Substance: CROMOLYN
  8. DOXYCYC [Concomitant]
  9. ENBREL [Concomitant]
     Active Substance: ETANERCEPT
  10. METOPROLOL TARTRATE. [Concomitant]
     Active Substance: METOPROLOL TARTRATE
  11. CLOBETASOL [Concomitant]
     Active Substance: CLOBETASOL
  12. KLOR-CON [Concomitant]
     Active Substance: POTASSIUM CHLORIDE
  13. HUMIRA [Concomitant]
     Active Substance: ADALIMUMAB
     Dates: start: 20180824
  14. AMITRIPTYLIN [Concomitant]
     Active Substance: AMITRIPTYLINE
  15. CLINDAMYCIN. [Concomitant]
     Active Substance: CLINDAMYCIN
  16. ESTAZOLAM. [Concomitant]
     Active Substance: ESTAZOLAM
  17. FUROSEMIDE. [Concomitant]
     Active Substance: FUROSEMIDE
  18. AUG BETAMET [Concomitant]
  19. LEVOTHYROXIN [Concomitant]
     Active Substance: LEVOTHYROXINE
  20. TALTZ [Suspect]
     Active Substance: IXEKIZUMAB
     Indication: PSORIASIS
     Dosage: ?          OTHER FREQUENCY:EVERY 2 WEEKS;?
     Route: 058
     Dates: start: 20180522, end: 20180814
  21. INDAPAMIDE. [Concomitant]
     Active Substance: INDAPAMIDE
  22. NASONEX [Concomitant]
     Active Substance: MOMETASONE FUROATE

REACTIONS (1)
  - Drug hypersensitivity [None]
